FAERS Safety Report 6792594-6 (Version None)
Quarter: 2010Q2

REPORT INFORMATION
  Report Type: 
  Country: None (occurrence: None)
  Receive Date: 20100624
  Receipt Date: 20080906
  Transmission Date: 20101027
  Serious: No
  Sender: FDA-Public Use
  Company Number: US-PFIZER INC-2008075224

PATIENT
  Sex: Female
  Weight: 81.818 kg

DRUGS (11)
  1. XALATAN [Suspect]
     Indication: GLAUCOMA
     Dates: start: 20080701, end: 20080822
  2. LASIX [Concomitant]
  3. AVAPRO [Concomitant]
  4. ACETYLSALICYLIC ACID [Concomitant]
  5. METOPROLOL [Concomitant]
  6. COLACE [Concomitant]
  7. PLENDIL [Concomitant]
  8. VYTORIN [Concomitant]
  9. AMIODARONE HCL [Concomitant]
  10. XANAX [Concomitant]
  11. SYNTHROID [Concomitant]

REACTIONS (5)
  - EYE PAIN [None]
  - EYE SWELLING [None]
  - INFECTION [None]
  - RASH [None]
  - TINEA PEDIS [None]
